FAERS Safety Report 6672067-1 (Version None)
Quarter: 2010Q2

REPORT INFORMATION
  Report Type: 
  Country: None (occurrence: None)
  Receive Date: 20100407
  Receipt Date: 20100407
  Transmission Date: 20101027
  Serious: No
  Sender: FDA-Public Use
  Company Number: None

PATIENT
  Age: 67 Year
  Sex: Female
  Weight: 83.4619 kg

DRUGS (2)
  1. BONIVA [Suspect]
     Indication: OSTEOPOROSIS
     Dosage: ONCE MONTHLY TABLET SAMPLE TAKEN ONCE PO
     Route: 048
     Dates: start: 20100301, end: 20100301
  2. ALENDRONATE SODIUM [Concomitant]

REACTIONS (3)
  - ABASIA [None]
  - INFLUENZA LIKE ILLNESS [None]
  - MYALGIA [None]
